FAERS Safety Report 6181985-2 (Version None)
Quarter: 2009Q2

REPORT INFORMATION
  Report Type: 
  Country: None (occurrence: None)
  Receive Date: 20090505
  Receipt Date: 20090421
  Transmission Date: 20091009
  Serious: Yes (Other)
  Sender: FDA-Public Use
  Company Number: 1-18192491

PATIENT
  Age: 78 Year
  Sex: Male
  Weight: 90.7194 kg

DRUGS (6)
  1. SANTYL [Suspect]
     Indication: WOUND
     Dosage: ONCE DAILY OR AS NEEDED, TOPICAL
     Route: 061
     Dates: start: 20040101
  2. MUPIRICUN [Concomitant]
  3. HYDROGEN PEROXIDE SOLUTION [Concomitant]
  4. FLOMAX [Concomitant]
  5. LUPRON (LEUPRODIDE ACETATE INJECTION) [Concomitant]
  6. PHISOHEX [Concomitant]

REACTIONS (2)
  - DRUG INEFFECTIVE [None]
  - NEOPLASM MALIGNANT [None]
